FAERS Safety Report 9694998 (Version 1)
Quarter: 2013Q4

REPORT INFORMATION
  Report Type: Spontaneous
  Country: US (occurrence: US)
  Receive Date: 20131119
  Receipt Date: 20131119
  Transmission Date: 20140711
  Serious: Yes (Other)
  Sender: FDA-Public Use
  Company Number: US-BAYER-2013-138571

PATIENT
  Sex: Female

DRUGS (1)
  1. NEXAVAR [Suspect]
     Indication: HEPATOCELLULAR CARCINOMA
     Dosage: HALF DOSE
     Route: 048
     Dates: start: 201310, end: 2013

REACTIONS (3)
  - Liver disorder [None]
  - Transaminases increased [None]
  - Blood bilirubin increased [None]
